FAERS Safety Report 7322574-3 (Version None)
Quarter: 2011Q1

REPORT INFORMATION
  Report Type: 
  Country: None (occurrence: None)
  Receive Date: 20110215
  Receipt Date: 20110201
  Transmission Date: 20110831
  Serious: Yes (Other)
  Sender: FDA-Public Use
  Company Number: 2011SP004999

PATIENT
  Age: 69 Year
  Sex: Female

DRUGS (6)
  1. RILMENIDINE [Concomitant]
  2. AFRIN [Suspect]
     Indication: SEASONAL ALLERGY
     Dosage: BID
     Dates: start: 20110113, end: 20110124
  3. METFORMIN [Concomitant]
  4. GLICLAZIDE [Concomitant]
  5. MOXONIDINE [Concomitant]
  6. INDIPAMIDE [Concomitant]

REACTIONS (1)
  - BLOOD PRESSURE INCREASED [None]
